FAERS Safety Report 19900276 (Version 1)
Quarter: 2021Q3

REPORT INFORMATION
  Report Type: Spontaneous
  Country: US (occurrence: US)
  Receive Date: 20210930
  Receipt Date: 20210930
  Transmission Date: 20211014
  Serious: No
  Sender: FDA-Public Use
  Company Number: US-CELLTRION INC.-2021US009458

PATIENT

DRUGS (1)
  1. INFLECTRA [Suspect]
     Active Substance: INFLIXIMAB-DYYB
     Indication: CROHN^S DISEASE
     Dosage: 10 MG/KG (INFUSED GENERALLY AROUND 2 HOURS EVERY 6 WEEKS)
     Route: 065
     Dates: start: 20180313

REACTIONS (3)
  - Treatment delayed [Unknown]
  - Product storage error [Unknown]
  - Overdose [Unknown]

NARRATIVE: CASE EVENT DATE: 20210709
